FAERS Safety Report 7675496-2 (Version None)
Quarter: 2011Q3

REPORT INFORMATION
  Report Type: 
  Country: None (occurrence: None)
  Receive Date: 20110810
  Receipt Date: 20110808
  Transmission Date: 20111222
  Serious: Yes (Death, Hospitalization, Other)
  Sender: FDA-Public Use
  Company Number: US-AMGEN-QUU420768

PATIENT
  Age: 81 Year
  Sex: Male

DRUGS (3)
  1. NPLATE [Suspect]
     Indication: IDIOPATHIC THROMBOCYTOPENIC PURPURA
     Dosage: 500 A?G, UNK
     Dates: start: 20100524, end: 20100601
  2. RITUXIMAB [Concomitant]
     Dosage: UNK UNK, UNK
     Dates: start: 20080901, end: 20100501
  3. PREDNISONE [Concomitant]
     Dosage: UNK UNK, UNK
     Dates: start: 20100501

REACTIONS (2)
  - UROSEPSIS [None]
  - DRUG INEFFECTIVE [None]
